FAERS Safety Report 8778157 (Version 2)
Quarter: 2012Q4

REPORT INFORMATION
  Report Type: Report from Study
  Country: US (occurrence: US)
  Receive Date: 20120913
  Receipt Date: 20120917
  Transmission Date: 20130627
  Serious: Yes (Hospitalization)
  Sender: FDA-Public Use
  Company Number: US-ABBOTT-12P-163-0972465-00

PATIENT
  Sex: Female

DRUGS (5)
  1. HUMIRA 40 MG/0.8 ML PEN [Suspect]
     Indication: CROHN^S DISEASE
     Dates: start: 201204, end: 201208
  2. OMEPRAZOLE [Concomitant]
     Indication: GASTROOESOPHAGEAL REFLUX DISEASE
     Dosage: 40mg daily
     Route: 048
  3. B12 [Concomitant]
     Indication: VITAMIN SUPPLEMENTATION
     Dosage: 2500mcg daily
     Route: 048
  4. B12 [Concomitant]
     Indication: CROHN^S DISEASE
  5. BIOTIN [Concomitant]
     Indication: VITAMIN SUPPLEMENTATION
     Dosage: 5000mg daily
     Route: 048

REACTIONS (8)
  - Generalised oedema [Unknown]
  - Oedema peripheral [Not Recovered/Not Resolved]
  - Asthenia [Not Recovered/Not Resolved]
  - Drug ineffective [Not Recovered/Not Resolved]
  - Swelling face [Unknown]
  - Oedema peripheral [Unknown]
  - Blood albumin decreased [Unknown]
  - Post thrombotic syndrome [Unknown]
